FAERS Safety Report 8530053-0 (Version None)
Quarter: 2012Q3

REPORT INFORMATION
  Report Type: 
  Country: None (occurrence: None)
  Receive Date: 20120723
  Receipt Date: 20120713
  Transmission Date: 20120928
  Serious: Yes (Death)
  Sender: FDA-Public Use
  Company Number: US-BRISTOL-MYERS SQUIBB COMPANY-16659609

PATIENT
  Age: 58 Year
  Sex: Female

DRUGS (5)
  1. AMLODIPINE [Concomitant]
  2. PERCOCET [Concomitant]
  3. DECADRON [Concomitant]
  4. YERVOY [Suspect]
     Indication: MALIGNANT MELANOMA
     Dosage: 1 DOSE
     Route: 042
     Dates: start: 20120511
  5. MS CONTIN [Concomitant]

REACTIONS (1)
  - NEOPLASM MALIGNANT [None]
